FAERS Safety Report 6825169-0 (Version None)
Quarter: 2010Q3

REPORT INFORMATION
  Report Type: 
  Country: None (occurrence: None)
  Receive Date: 20100708
  Receipt Date: 20070104
  Transmission Date: 20110219
  Serious: Yes (Other)
  Sender: FDA-Public Use
  Company Number: US-PFIZER INC-2007002323

PATIENT
  Sex: Female

DRUGS (9)
  1. CHANTIX [Suspect]
     Indication: SMOKING CESSATION THERAPY
     Dates: start: 20061225
  2. ACTOS [Concomitant]
  3. GLUCOVANCE [Concomitant]
  4. PRAVACHOL [Concomitant]
  5. XANAX [Concomitant]
  6. CYMBALTA [Concomitant]
  7. PROVIGIL [Concomitant]
  8. FISH OIL [Concomitant]
  9. ACETYLSALICYLIC ACID [Concomitant]

REACTIONS (7)
  - ABNORMAL DREAMS [None]
  - CONSTIPATION [None]
  - ENURESIS [None]
  - FLATULENCE [None]
  - NAUSEA [None]
  - POLYURIA [None]
  - VOMITING [None]
